FAERS Safety Report 10070217 (Version 2)
Quarter: 2014Q2

REPORT INFORMATION
  Report Type: Spontaneous
  Country: BR (occurrence: None)
  Receive Date: 20140408
  Receipt Date: 20140409
  Transmission Date: 20141212
  Serious: Yes (Other)
  Sender: FDA-Public Use
  Company Number: AUR-APL-2014-04274

PATIENT
  Age: 60 Year
  Sex: Female
  Weight: 70 kg

DRUGS (6)
  1. ATENOLOL [Suspect]
     Indication: HYPERTENSION
     Route: 048
     Dates: start: 2012, end: 201402
  2. MELOXICAM [Suspect]
     Indication: DRUG THERAPY
     Route: 048
     Dates: start: 201401
  3. ATACAND (CANDESARTAN CILEXETIL) [Suspect]
     Indication: HYPERTENSION
     Route: 048
     Dates: start: 2012, end: 20140319
  4. ATACAND HCT [Suspect]
     Indication: HYPERTENSION
     Route: 048
     Dates: start: 20140320
  5. CHLORTHALIDONE (CHLORTALIDONE) [Concomitant]
  6. ARCOXIA (ETORIVOXIB) [Concomitant]

REACTIONS (9)
  - Fall [None]
  - No therapeutic response [None]
  - Blood pressure increased [None]
  - Drug ineffective [None]
  - Nausea [None]
  - Off label use [None]
  - Drug dispensing error [None]
  - Wrong drug administered [None]
  - Meniscus injury [None]
